FAERS Safety Report 25170921 (Version 1)
Quarter: 2025Q2

REPORT INFORMATION
  Report Type: Spontaneous
  Country: US (occurrence: US)
  Receive Date: 20250408
  Receipt Date: 20250408
  Transmission Date: 20250717
  Serious: No
  Sender: DR REDDYS
  Company Number: US-DRL-USA-USA/2025/03/004531

PATIENT
  Sex: Female

DRUGS (2)
  1. NICOTINE [Suspect]
     Active Substance: NICOTINE
     Indication: Tobacco user
     Route: 062
  2. NICOTINE [Suspect]
     Active Substance: NICOTINE
     Route: 062

REACTIONS (1)
  - Drug ineffective [Unknown]
